FAERS Safety Report 13768351 (Version 21)
Quarter: 2019Q3

REPORT INFORMATION
  Report Type: Spontaneous
  Country: FR (occurrence: FR)
  Receive Date: 20170719
  Receipt Date: 20190826
  Transmission Date: 20191004
  Serious: Yes (Hospitalization, Congenital Anomaly, Other)
  Sender: FDA-Public Use
  Company Number: FR-BRISTOL-MYERS SQUIBB COMPANY-BMS-2017-060931

PATIENT
  Age: 0 Day
  Sex: Female
  Weight: 2.2 kg

DRUGS (6)
  1. NORVIR [Suspect]
     Active Substance: RITONAVIR
     Indication: PRODUCT USED FOR UNKNOWN INDICATION
     Dosage: 1 TAB, QD
     Route: 064
     Dates: start: 20160501, end: 20170129
  2. VIRAMUNE [Suspect]
     Active Substance: NEVIRAPINE
     Indication: PROPHYLAXIS AGAINST HIV INFECTION
     Dosage: UNK
     Route: 048
  3. REYATAZ [Suspect]
     Active Substance: ATAZANAVIR SULFATE
     Indication: PRODUCT USED FOR UNKNOWN INDICATION
     Dosage: UNK
     Route: 064
     Dates: start: 20160501, end: 20170129
  4. PREZISTA [Suspect]
     Active Substance: DARUNAVIR ETHANOLATE
     Indication: PRODUCT USED FOR UNKNOWN INDICATION
     Dosage: UNK
     Route: 064
     Dates: start: 20160501, end: 20170129
  5. KIVEXA [Suspect]
     Active Substance: ABACAVIR SULFATE\LAMIVUDINE
     Indication: PRODUCT USED FOR UNKNOWN INDICATION
     Dosage: UNK
     Route: 064
     Dates: start: 20160501, end: 20170129
  6. NEVIRAPINE. [Suspect]
     Active Substance: NEVIRAPINE
     Indication: PRODUCT USED FOR UNKNOWN INDICATION
     Dosage: UNK
     Route: 064

REACTIONS (10)
  - Dilatation ventricular [Unknown]
  - Foetal exposure during pregnancy [Unknown]
  - Congenital naevus [Unknown]
  - Acoustic stimulation tests abnormal [Unknown]
  - Dermatitis exfoliative generalised [Unknown]
  - Foetal growth restriction [Unknown]
  - Breast disorder [Unknown]
  - Supernumerary nipple [Unknown]
  - Eosinophilia [Unknown]
  - Low set ears [Unknown]

NARRATIVE: CASE EVENT DATE: 20170129
